FAERS Safety Report 5245478-9 (Version None)
Quarter: 2007Q1

REPORT INFORMATION
  Report Type: 
  Country: None (occurrence: None)
  Receive Date: 20070223
  Receipt Date: 20070213
  Transmission Date: 20070707
  Serious: Yes (Other)
  Sender: FDA-Public Use
  Company Number: US-PFIZER INC-2007012120

PATIENT
  Sex: Male
  Weight: 99.8 kg

DRUGS (9)
  1. CHANTIX [Suspect]
     Indication: SMOKING CESSATION THERAPY
     Dates: start: 20070101, end: 20070201
  2. QUINAPRIL [Concomitant]
  3. METOPROLOL SUCCINATE [Concomitant]
  4. WARFARIN SODIUM [Concomitant]
  5. FELODIPINE [Concomitant]
  6. OMEPRAZOLE [Concomitant]
  7. ALL OTHER THERAPEUTIC PRODUCTS [Concomitant]
  8. PLAVIX [Concomitant]
  9. ASPIRIN [Concomitant]

REACTIONS (3)
  - CONTUSION [None]
  - DYSGEUSIA [None]
  - HAEMORRHAGE [None]
